FAERS Safety Report 19250946 (Version 2)
Quarter: 2021Q2

REPORT INFORMATION
  Report Type: Spontaneous
  Country: RU (occurrence: RU)
  Receive Date: 20210512
  Receipt Date: 20210528
  Transmission Date: 20210717
  Serious: Yes (Other)
  Sender: FDA-Public Use
  Company Number: RU-ALLERGAN-2117736US

PATIENT
  Sex: Female
  Weight: 53 kg

DRUGS (4)
  1. AMINAZIN [Concomitant]
     Active Substance: CHLORPROMAZINE HYDROCHLORIDE
     Indication: MENTAL DISORDER
     Dosage: UNK
     Route: 048
     Dates: start: 20210221
  2. CYCLODOL [Concomitant]
     Active Substance: TRIHEXYPHENIDYL HYDROCHLORIDE
     Indication: PROPHYLAXIS
     Dosage: UNK
     Route: 048
     Dates: start: 20201216, end: 20210324
  3. AMINAZIN [Concomitant]
     Active Substance: CHLORPROMAZINE HYDROCHLORIDE
     Dosage: 150 MG, QD
     Route: 048
     Dates: end: 20210324
  4. CARIPRAZINE HCL ? BP [Suspect]
     Active Substance: CARIPRAZINE HYDROCHLORIDE
     Indication: MENTAL DISORDER
     Dosage: 3 MG, QD
     Route: 048
     Dates: start: 20210226, end: 20210409

REACTIONS (1)
  - Treatment failure [Not Recovered/Not Resolved]

NARRATIVE: CASE EVENT DATE: 20210309
